FAERS Safety Report 6138075-4 (Version None)
Quarter: 2009Q1

REPORT INFORMATION
  Report Type: 
  Country: None (occurrence: None)
  Receive Date: 20090331
  Receipt Date: 20090317
  Transmission Date: 20090719
  Serious: Yes (Hospitalization)
  Sender: FDA-Public Use
  Company Number: JP-ELI_LILLY_AND_COMPANY-JP200903006135

PATIENT
  Sex: Female
  Weight: 59.6 kg

DRUGS (6)
  1. SOMATROPIN [Suspect]
     Indication: GROWTH HORMONE DEFICIENCY
     Dosage: 0.2 MG, DAILY (1/D)
     Route: 058
     Dates: start: 20070209, end: 20070403
  2. SOMATROPIN [Suspect]
     Dosage: 0.3 MG, DAILY (1/D)
     Route: 058
     Dates: start: 20070404, end: 20070605
  3. SOMATROPIN [Suspect]
     Dosage: 0.4 MG, DAILY (1/D)
     Route: 058
     Dates: start: 20070606
  4. CORTRIL [Concomitant]
     Indication: SECONDARY ADRENOCORTICAL INSUFFICIENCY
     Dosage: 10 MG, DAILY (1/D)
     Route: 048
     Dates: start: 20070119
  5. THYRADIN S [Concomitant]
     Indication: SECONDARY HYPOTHYROIDISM
     Dosage: 50 UG, DAILY (1/D)
     Route: 048
     Dates: start: 20070203
  6. LIPITOR [Concomitant]
     Indication: HYPERLIPIDAEMIA
     Dosage: 10 MG, DAILY (1/D)
     Dates: start: 20070829

REACTIONS (1)
  - OVARIAN NEOPLASM [None]
